FAERS Safety Report 20066809 (Version 1)
Quarter: 2021Q4

REPORT INFORMATION
  Report Type: Spontaneous
  Country: US (occurrence: US)
  Receive Date: 20211115
  Receipt Date: 20211115
  Transmission Date: 20220303
  Serious: No
  Sender: FDA-Public Use
  Company Number: US-BRISTOL-MYERS SQUIBB COMPANY-BMS-2021-117692

PATIENT
  Age: 49 Year
  Sex: Female

DRUGS (1)
  1. SPRYCEL [Suspect]
     Active Substance: DASATINIB
     Indication: Chronic myeloid leukaemia
     Dosage: 140 MILLIGRAM, QD
     Route: 048
     Dates: start: 202107

REACTIONS (3)
  - Visual impairment [Recovering/Resolving]
  - Fluid retention [Recovering/Resolving]
  - Swelling [Recovering/Resolving]
